FAERS Safety Report 12342541 (Version 2)
Quarter: 2016Q3

REPORT INFORMATION
  Report Type: Spontaneous
  Country: US (occurrence: US)
  Receive Date: 20160506
  Receipt Date: 20160711
  Transmission Date: 20161109
  Serious: Yes (Hospitalization, Other)
  Sender: FDA-Public Use
  Company Number: US-BAYER-2016-086493

PATIENT
  Age: 31 Year
  Sex: Female
  Weight: 122.45 kg

DRUGS (1)
  1. MIRENA [Suspect]
     Active Substance: LEVONORGESTREL
     Indication: CONTRACEPTION
     Dosage: 20 MCG/24HR, CONT
     Route: 015
     Dates: start: 20110927, end: 20130819

REACTIONS (9)
  - Hirsutism [None]
  - Emotional distress [None]
  - Device dislocation [None]
  - Abdominal pain lower [None]
  - Genital haemorrhage [None]
  - Mood swings [None]
  - Back pain [None]
  - Depression [None]
  - Abdominal pain [None]

NARRATIVE: CASE EVENT DATE: 20111002
